FAERS Safety Report 6041239-1 (Version None)
Quarter: 2009Q1

REPORT INFORMATION
  Report Type: 
  Country: None (occurrence: None)
  Receive Date: 20090116
  Receipt Date: 20080919
  Transmission Date: 20090719
  Serious: No
  Sender: FDA-Public Use
  Company Number: US-BRISTOL-MYERS SQUIBB COMPANY-14341937

PATIENT
  Age: 50 Year
  Sex: Female

DRUGS (2)
  1. ABILIFY [Suspect]
     Dosage: DRUG DISCONTD AND RESTARTED ON 1MG.
  2. EFFEXOR [Concomitant]

REACTIONS (1)
  - AKATHISIA [None]
